FAERS Safety Report 5358298-1 (Version None)
Quarter: 2007Q2

REPORT INFORMATION
  Report Type: 
  Country: None (occurrence: None)
  Receive Date: 20070614
  Receipt Date: 20070614
  Transmission Date: 20071010
  Serious: No
  Sender: FDA-Public Use
  Company Number: None

PATIENT
  Sex: Female

DRUGS (2)
  1. TRIAMTERENE W/ HYDROCHLOROTHIAZIDE [Suspect]
     Indication: OEDEMA PERIPHERAL
     Dosage: 375-25MG DAILY ORAL
     Route: 048
     Dates: start: 20070401
  2. TRIAMTERENE W/ HYDROCHLOROTHIAZIDE [Suspect]
     Indication: PALPITATIONS
     Dosage: 375-25MG DAILY ORAL
     Route: 048
     Dates: start: 20070401

REACTIONS (2)
  - OEDEMA PERIPHERAL [None]
  - WEIGHT INCREASED [None]
